FAERS Safety Report 6216684-1 (Version None)
Quarter: 2009Q2

REPORT INFORMATION
  Report Type: 
  Country: None (occurrence: None)
  Receive Date: 20090604
  Receipt Date: 20090604
  Transmission Date: 20091009
  Serious: No
  Sender: FDA-Public Use
  Company Number: None

PATIENT
  Age: 65 Year
  Sex: Female
  Weight: 79.3795 kg

DRUGS (2)
  1. VARIOUS MANUFACTURE NAME METFORMIN  500MG REGULAR / EXP [Suspect]
     Indication: TYPE 2 DIABETES MELLITUS
     Dosage: 500MG BID P.O.  7 YEARS AGO
     Route: 048
     Dates: start: 20081001
  2. GLUCOPHAGE [Suspect]
     Dates: start: 20081001

REACTIONS (3)
  - DIARRHOEA [None]
  - GASTROINTESTINAL DISORDER [None]
  - PRODUCT SUBSTITUTION ISSUE [None]
